FAERS Safety Report 24016394 (Version 3)
Quarter: 2024Q3

REPORT INFORMATION
  Report Type: Spontaneous
  Country: US (occurrence: US)
  Receive Date: 20240626
  Receipt Date: 20240709
  Transmission Date: 20241017
  Serious: Yes (Other)
  Sender: SANOFI AVENTIS
  Company Number: US-SA-SAC20240620000059

PATIENT
  Age: 60 Year
  Sex: Female

DRUGS (30)
  1. DUPIXENT [Suspect]
     Active Substance: DUPILUMAB
     Indication: Dermatitis atopic
     Dosage: 300 MG, QOW
     Route: 058
     Dates: start: 2022
  2. DICLOFENAC [Concomitant]
     Active Substance: DICLOFENAC
  3. MOUNJARO [Concomitant]
     Active Substance: TIRZEPATIDE
  4. ASPIRIN [Concomitant]
     Active Substance: ASPIRIN
  5. CICLOPIROX [Concomitant]
     Active Substance: CICLOPIROX
  6. CLOBETASOL PROPIONATE [Concomitant]
     Active Substance: CLOBETASOL PROPIONATE
  7. CROMOLYN SODIUM [Concomitant]
     Active Substance: CROMOLYN SODIUM
  8. ERYTHROMYCIN [Concomitant]
     Active Substance: ERYTHROMYCIN
  9. FLUTICASONE [Concomitant]
     Active Substance: FLUTICASONE
  10. GABAPENTIN [Concomitant]
     Active Substance: GABAPENTIN
  11. JANUMET [Concomitant]
     Active Substance: METFORMIN HYDROCHLORIDE\SITAGLIPTIN PHOSPHATE
  12. LEVOCETIRIZINE DIHYDROCHLORIDE [Concomitant]
     Active Substance: LEVOCETIRIZINE DIHYDROCHLORIDE
  13. METOPROLOL [Concomitant]
     Active Substance: METOPROLOL
  14. NIFEDIPINE [Concomitant]
     Active Substance: NIFEDIPINE
  15. NOVOLOG [Concomitant]
     Active Substance: INSULIN ASPART
  16. OLMESARTAN [Concomitant]
     Active Substance: OLMESARTAN
  17. OLOPATADINE [Concomitant]
     Active Substance: OLOPATADINE
  18. ROSUVASTATIN [Concomitant]
     Active Substance: ROSUVASTATIN
  19. VITAMIN D3 [Concomitant]
     Active Substance: CHOLECALCIFEROL
  20. BACLOFEN [Concomitant]
     Active Substance: BACLOFEN
     Dosage: UNK
  21. METFORMIN HYDROCHLORIDE [Concomitant]
     Active Substance: METFORMIN HYDROCHLORIDE
  22. ONDANSETRON [Concomitant]
     Active Substance: ONDANSETRON
     Dosage: UNK
  23. SYNTHROID [Concomitant]
     Active Substance: LEVOTHYROXINE SODIUM
  24. TERBINAFINE [Concomitant]
     Active Substance: TERBINAFINE
     Dosage: UNK
  25. TRAZODONE HYDROCHLORIDE [Concomitant]
     Active Substance: TRAZODONE HYDROCHLORIDE
     Dosage: UNK
  26. CLOBETASOL [Concomitant]
     Active Substance: CLOBETASOL
  27. ACETAMINOPHEN [Concomitant]
     Active Substance: ACETAMINOPHEN
     Dosage: UNK
  28. ASPIRIN [Concomitant]
     Active Substance: ASPIRIN
     Dosage: UNK
  29. METOPROLOL [Concomitant]
     Active Substance: METOPROLOL
     Dosage: UNK
  30. NIFEDIPINE [Concomitant]
     Active Substance: NIFEDIPINE
     Dosage: UNK

REACTIONS (17)
  - Neuropathy peripheral [Unknown]
  - Arthralgia [Unknown]
  - Pain in extremity [Unknown]
  - Headache [Unknown]
  - Weight decreased [Unknown]
  - Decreased activity [Unknown]
  - Depression [Unknown]
  - Emotional disorder [Unknown]
  - Dry skin [Unknown]
  - Ankle fracture [Unknown]
  - Sensitive skin [Unknown]
  - Memory impairment [Unknown]
  - Distractibility [Unknown]
  - Product dose omission in error [Unknown]
  - Skin exfoliation [Unknown]
  - Insomnia [Not Recovered/Not Resolved]
  - Dry eye [Unknown]

NARRATIVE: CASE EVENT DATE: 20240616
